FAERS Safety Report 6861375-7 (Version None)
Quarter: 2010Q3

REPORT INFORMATION
  Report Type: 
  Country: None (occurrence: None)
  Receive Date: 20100720
  Receipt Date: 20100324
  Transmission Date: 20110219
  Serious: Yes (Other)
  Sender: FDA-Public Use
  Company Number: US-BAYER-200937440NA

PATIENT
  Age: 30 Year
  Sex: Female
  Weight: 57 kg

DRUGS (6)
  1. YAZ [Suspect]
     Indication: CONTRACEPTION
     Route: 048
     Dates: start: 20070108, end: 20090505
  2. NIFEDIPINE [Concomitant]
     Dates: start: 20050101
  3. AZITHROMYCIN [Concomitant]
  4. FLUCONAZOLE [Concomitant]
  5. AMOXICILLIN [Concomitant]
  6. NAPROXEN [Concomitant]

REACTIONS (4)
  - ABDOMINAL DISTENSION [None]
  - ABDOMINAL PAIN UPPER [None]
  - FLATULENCE [None]
  - GALLBLADDER DISORDER [None]
